FAERS Safety Report 5576963-8 (Version None)
Quarter: 2007Q4

REPORT INFORMATION
  Report Type: 
  Country: None (occurrence: None)
  Receive Date: 20071228
  Receipt Date: 20071218
  Transmission Date: 20080405
  Serious: Yes (Hospitalization, Other)
  Sender: FDA-Public Use
  Company Number: CA-ABBOTT-07P-028-0431009-00

PATIENT
  Sex: Male

DRUGS (4)
  1. MAVIK [Suspect]
     Indication: DRUG USE FOR UNKNOWN INDICATION
     Route: 048
     Dates: start: 20070308
  2. PANTALOC [Concomitant]
     Indication: DYSPEPSIA
     Route: 048
     Dates: start: 20070601
  3. FERROUS SULFATE TAB [Concomitant]
     Indication: ANAEMIA
     Route: 048
     Dates: start: 20070601
  4. RIVASIN [Concomitant]
     Indication: DRUG USE FOR UNKNOWN INDICATION
     Route: 048
     Dates: start: 20051101

REACTIONS (4)
  - ANAEMIA [None]
  - BARRETT'S OESOPHAGUS [None]
  - HAEMORRHAGE [None]
  - OESOPHAGITIS ULCERATIVE [None]
